FAERS Safety Report 5152001-6 (Version None)
Quarter: 2006Q4

REPORT INFORMATION
  Report Type: 
  Country: None (occurrence: None)
  Receive Date: 20061116
  Receipt Date: 20061106
  Transmission Date: 20070319
  Serious: Yes (Hospitalization, Other)
  Sender: FDA-Public Use
  Company Number: DE-ELI_LILLY_AND_COMPANY-DE200611002065

PATIENT
  Age: 53 Year
  Sex: Female

DRUGS (3)
  1. ZYPREXA [Suspect]
     Indication: ALCOHOLISM
     Dosage: 5 MG, DAILY (1/D)
     Route: 048
     Dates: start: 20060609, end: 20060612
  2. ZYPREXA [Suspect]
     Dosage: 10 MG, DAILY (1/D)
     Route: 048
     Dates: start: 20060613, end: 20060620
  3. ZYPREXA [Suspect]
     Dosage: 5 MG, DAILY (1/D)
     Route: 048
     Dates: start: 20060621

REACTIONS (10)
  - ACTIVATED PARTIAL THROMBOPLASTIN TIME PROLONGED [None]
  - AMMONIA INCREASED [None]
  - BLOOD BILIRUBIN INCREASED [None]
  - BLOOD PRESSURE DECREASED [None]
  - CERUMEN IMPACTION [None]
  - CHOLELITHIASIS [None]
  - ELECTROENCEPHALOGRAM ABNORMAL [None]
  - LYMPHOEDEMA [None]
  - OEDEMA PERIPHERAL [None]
  - STASIS DERMATITIS [None]
